FAERS Safety Report 25915548 (Version 1)
Quarter: 2025Q4

REPORT INFORMATION
  Report Type: Spontaneous
  Country: AU (occurrence: None)
  Receive Date: 20251013
  Receipt Date: 20251013
  Transmission Date: 20260117
  Serious: Yes (Other)
  Sender: ORGANON
  Company Number: AU-ASPEN-AUS2025AU006682

PATIENT
  Age: 87 Year
  Sex: Male

DRUGS (3)
  1. BETAMETHASONE DIPROPIONATE [Suspect]
     Active Substance: BETAMETHASONE DIPROPIONATE
     Indication: Keratoacanthoma
     Dosage: UNK
  2. MENTHOL [Suspect]
     Active Substance: MENTHOL
     Indication: Keratoacanthoma
     Dosage: UNK
  3. METHYLPREDNISOLONE ACEPONATE [Suspect]
     Active Substance: METHYLPREDNISOLONE ACEPONATE
     Indication: Keratoacanthoma
     Dosage: UNK

REACTIONS (2)
  - Therapeutic product effect incomplete [Unknown]
  - Off label use [Unknown]
